FAERS Safety Report 4597252-4 (Version None)
Quarter: 2005Q1

REPORT INFORMATION
  Report Type: 
  Country: None (occurrence: None)
  Receive Date: 20050301
  Receipt Date: 20050216
  Transmission Date: 20050727
  Serious: Yes (Hospitalization, Other)
  Sender: FDA-Public Use
  Company Number: 2005024184

PATIENT
  Sex: Male

DRUGS (5)
  1. CELEBREX [Suspect]
     Indication: ARTHRITIS
     Dosage: 200 MG (100 MG, 2 IN 1 D), ORAL
     Route: 048
     Dates: end: 20050101
  2. CODEINE SUL TAB [Concomitant]
  3. ACETAMINOPHEN [Concomitant]
  4. GLUCOSAMINE (GLUCOSAMINE) [Concomitant]
  5. CORTICOSTEROIDS (CORTICOSTEROIDS) [Concomitant]

REACTIONS (4)
  - ABDOMINAL SYMPTOM [None]
  - ARTHRITIS [None]
  - DRUG INEFFECTIVE [None]
  - INTESTINAL RESECTION [None]
